APPROVED DRUG PRODUCT: PROHANCE
Active Ingredient: GADOTERIDOL
Strength: 279.3MG/ML
Dosage Form/Route: INJECTABLE;INJECTION
Application: N020131 | Product #001 | TE Code: AP
Applicant: BRACCO DIAGNOSTICS INC
Approved: Nov 16, 1992 | RLD: Yes | RS: Yes | Type: RX